FAERS Safety Report 8456581 (Version 2)
Quarter: 2013Q1

REPORT INFORMATION
  Report Type: Spontaneous
  Country: US (occurrence: US)
  Receive Date: 20120313
  Receipt Date: 20130320
  Transmission Date: 20140127
  Serious: No
  Sender: FDA-Public Use
  Company Number: US-PFIZER INC-2012063962

PATIENT
  Age: 61 Year
  Sex: Female
  Weight: 107 kg

DRUGS (15)
  1. LIPITOR [Suspect]
     Indication: BLOOD CHOLESTEROL INCREASED
     Dosage: UNK
     Route: 048
  2. DIAZEPAM [Suspect]
     Indication: DEPRESSION
     Dosage: 5 MG, 2X/DAY
     Route: 048
  3. DIAZEPAM [Suspect]
     Indication: ANXIETY
  4. BENICAR HCT [Suspect]
     Indication: HYPERTENSION
     Dosage: [OLMESARTAN MEDOXOMIL 20]/[HYDROCHLOROTHIAZIDE 12.5 MG], DAILY
     Route: 048
     Dates: start: 2011
  5. METFORMIN HCL [Suspect]
     Indication: DIABETES MELLITUS
     Dosage: 500 MG, 2X/DAY
     Route: 048
  6. FLUOXETINE HCL [Suspect]
     Indication: DEPRESSION
     Dosage: 40 MG, DAILY
     Route: 048
  7. FLUOXETINE HCL [Suspect]
     Indication: ANXIETY
  8. ZOLPIDEM TARTRATE [Suspect]
     Indication: SLEEP DISORDER
     Dosage: 10 MG DAILY AT NIGHT
     Route: 048
  9. ALBUTEROL SULFATE [Suspect]
     Indication: ASTHMA
     Dosage: AS NEEDED
  10. PREDNISONE [Suspect]
     Indication: COUGH
     Dosage: UNK
  11. ALBUTEROL [Suspect]
     Indication: ASTHMA
     Dosage: UNK
  12. SINGULAIR [Suspect]
     Indication: ASTHMA
     Dosage: 10 MG, 1X/DAY
     Route: 048
  13. INDOMETHACIN [Suspect]
     Indication: GOUT
     Dosage: 50 MG, AS NEEDED IN EVERY 8 TO 12 HOURS
     Route: 048
  14. ADVAIR DISKUS [Suspect]
     Indication: CHRONIC OBSTRUCTIVE PULMONARY DISEASE
     Dosage: UNK, 2X/DAY
     Route: 065
  15. ADVAIR DISKUS [Suspect]
     Indication: ASTHMA

REACTIONS (2)
  - Flatulence [Not Recovered/Not Resolved]
  - Blood cholesterol increased [Unknown]
